FAERS Safety Report 18693298 (Version 3)
Quarter: 2022Q2

REPORT INFORMATION
  Report Type: Other
  Country: AR (occurrence: AR)
  Receive Date: 20210104
  Receipt Date: 20220505
  Transmission Date: 20220721
  Serious: Yes (Other)
  Sender: FDA-Public Use
  Company Number: AR-002147023-PHHY2017AR127232

PATIENT
  Age: 66 Year
  Sex: Male

DRUGS (10)
  1. XOLAIR [Suspect]
     Active Substance: OMALIZUMAB
     Indication: Asthma
     Route: 058
     Dates: start: 20130101
  2. XOLAIR [Suspect]
     Active Substance: OMALIZUMAB
     Dosage: 4 DF, (150 MG), EVERY 15 DAYS
     Route: 058
     Dates: start: 2014
  3. TIOTROPIUM [Concomitant]
     Active Substance: TIOTROPIUM
     Indication: Product used for unknown indication
     Route: 065
  4. MOMETASONE FUROATE [Concomitant]
     Active Substance: MOMETASONE FUROATE
     Indication: Product used for unknown indication
     Route: 065
  5. ALBUTEROL [Concomitant]
     Active Substance: ALBUTEROL
     Indication: Product used for unknown indication
     Route: 065
  6. LOSARTAN [Concomitant]
     Active Substance: LOSARTAN
     Indication: Hypertension
     Route: 065
  7. ACETYLCYSTEINE [Concomitant]
     Active Substance: ACETYLCYSTEINE
     Indication: Product used for unknown indication
     Route: 065
  8. BUDESONIDE [Concomitant]
     Active Substance: BUDESONIDE
     Indication: Product used for unknown indication
     Route: 065
  9. IPRATROPIUM [Concomitant]
     Active Substance: IPRATROPIUM
     Indication: Product used for unknown indication
     Route: 065
  10. SPIRIVA [TIOTROPIUM BROMIDE] [Concomitant]
     Indication: Product used for unknown indication
     Route: 065

REACTIONS (14)
  - Cardiac failure [Unknown]
  - Renal failure [Unknown]
  - Diabetes mellitus [Not Recovered/Not Resolved]
  - Rhinitis [Unknown]
  - Pyrexia [Recovered/Resolved]
  - Dry skin [Unknown]
  - Varicose vein [Unknown]
  - Muscle atrophy [Unknown]
  - Pain [Unknown]
  - Dysphemia [Unknown]
  - Speech disorder [Unknown]
  - Fatigue [Recovered/Resolved]
  - Asthenia [Unknown]
  - Inappropriate schedule of product administration [Unknown]

NARRATIVE: CASE EVENT DATE: 20130101
